FAERS Safety Report 9440058 (Version 1)
Quarter: 2013Q3

REPORT INFORMATION
  Report Type: Spontaneous
  Country: JP (occurrence: JP)
  Receive Date: 20130805
  Receipt Date: 20130805
  Transmission Date: 20140515
  Serious: Yes (Death)
  Sender: FDA-Public Use
  Company Number: JP-ASTELLAS-2013JP008060

PATIENT
  Sex: Female
  Weight: 45 kg

DRUGS (1)
  1. PROGRAF [Suspect]
     Dosage: 0.3 MG, UNKNOWN/D
     Route: 042
     Dates: start: 20130717, end: 20130717

REACTIONS (2)
  - Intentional drug misuse [Unknown]
  - Cardiac arrest [Fatal]
